FAERS Safety Report 4602033-9 (Version None)
Quarter: 2005Q1

REPORT INFORMATION
  Report Type: 
  Country: None (occurrence: None)
  Receive Date: 20050214
  Receipt Date: 20031223
  Transmission Date: 20050727
  Serious: Yes (Other)
  Sender: FDA-Public Use
  Company Number: 8003749

PATIENT
  Age: 46 Year
  Sex: Female

DRUGS (11)
  1. KEPPRA [Suspect]
     Indication: MIGRAINE
     Dosage: 250 MG 1/D PO
     Route: 048
     Dates: start: 20030630, end: 20030706
  2. KEPPRA [Suspect]
     Indication: MIGRAINE
     Dosage: 250 MG 2/D PO
     Route: 048
     Dates: start: 20030707, end: 20030717
  3. MYSOLINE [Concomitant]
  4. KLONOPIN [Concomitant]
  5. FIORICET [Concomitant]
  6. SYNTHROID [Concomitant]
  7. PREVACID [Concomitant]
  8. IMITREX ^CERENEX^ [Concomitant]
  9. MULTI-VITAMINS [Concomitant]
  10. ALLEGRA-D [Concomitant]
  11. ALLERGY SHOTS [Concomitant]

REACTIONS (7)
  - AMNESIA [None]
  - EYE PAIN [None]
  - FALL [None]
  - FATIGUE [None]
  - PERSONALITY CHANGE [None]
  - SUICIDAL IDEATION [None]
  - SUICIDE ATTEMPT [None]
